FAERS Safety Report 6326723-5 (Version None)
Quarter: 2009Q3

REPORT INFORMATION
  Report Type: 
  Country: None (occurrence: None)
  Receive Date: 20090825
  Receipt Date: 20090820
  Transmission Date: 20100115
  Serious: Yes (Hospitalization, Other)
  Sender: FDA-Public Use
  Company Number: PHEH2007US03988

PATIENT
  Sex: Male
  Weight: 93.424 kg

DRUGS (6)
  1. ELIDEL [Suspect]
     Indication: ECZEMA
     Route: 061
     Dates: start: 20010101
  2. ELIDEL [Suspect]
     Dates: start: 20050101
  3. HYDROCODONE [Concomitant]
  4. HYDROXYZINE [Concomitant]
  5. CHONDROITIN A [Concomitant]
  6. MULTI-VITAMINS [Concomitant]

REACTIONS (31)
  - ARTHROSCOPY [None]
  - BLOOD CULTURE POSITIVE [None]
  - BLOOD GLUCOSE INCREASED [None]
  - BONE MARROW TRANSPLANT [None]
  - BRONCHITIS [None]
  - CATARACT OPERATION [None]
  - CATHETER RELATED INFECTION [None]
  - CONDITION AGGRAVATED [None]
  - DRUG INEFFECTIVE [None]
  - ERYTHEMA [None]
  - EXOSTOSIS [None]
  - HEPATIC STEATOSIS [None]
  - HERPES ZOSTER [None]
  - LEFT VENTRICULAR HYPERTROPHY [None]
  - MULTIPLE MYELOMA [None]
  - MUSCULOSKELETAL CHEST PAIN [None]
  - NEUROPATHY PERIPHERAL [None]
  - PHARYNGITIS [None]
  - PLASMACYTOMA [None]
  - POLYDIPSIA [None]
  - POLYURIA [None]
  - PRURITUS [None]
  - PYREXIA [None]
  - RASH [None]
  - REFUSAL OF TREATMENT BY PATIENT [None]
  - SEBORRHOEIC DERMATITIS [None]
  - SLEEP DISORDER [None]
  - STAPHYLOCOCCAL BACTERAEMIA [None]
  - STEM CELL TRANSPLANT [None]
  - TYPE 2 DIABETES MELLITUS [None]
  - WEIGHT DECREASED [None]
